FAERS Safety Report 8341207-0 (Version None)
Quarter: 2012Q2

REPORT INFORMATION
  Report Type: 
  Country: None (occurrence: None)
  Receive Date: 20120507
  Receipt Date: 20120502
  Transmission Date: 20120825
  Serious: No
  Sender: FDA-Public Use
  Company Number: US-TEVA-336456USA

PATIENT
  Sex: Female

DRUGS (2)
  1. PLAN B ONE-STEP [Suspect]
     Indication: POST COITAL CONTRACEPTION
     Dosage: 1.5 MILLIGRAM;
     Route: 048
     Dates: start: 20120423, end: 20120423
  2. MULTI-VITAMINS [Concomitant]
     Indication: MEDICAL DIET
     Route: 048

REACTIONS (4)
  - HEADACHE [None]
  - NAUSEA [None]
  - CHILLS [None]
  - DIZZINESS [None]
